FAERS Safety Report 8237939-5 (Version None)
Quarter: 2012Q1

REPORT INFORMATION
  Report Type: 
  Country: None (occurrence: None)
  Receive Date: 20120327
  Receipt Date: 20120321
  Transmission Date: 20120608
  Serious: Yes (Hospitalization)
  Sender: FDA-Public Use
  Company Number: US-GLAXOSMITHKLINE-A0971023A

PATIENT
  Age: 58 Year
  Sex: Male
  Weight: 100.7 kg

DRUGS (8)
  1. ZOFRAN [Concomitant]
  2. OMEPRAZOLE [Concomitant]
  3. OFATUMUMAB [Suspect]
     Indication: CHRONIC LYMPHOCYTIC LEUKAEMIA
     Dosage: 1000MG WEEKLY
     Route: 042
     Dates: start: 20111213
  4. ALLOPURINOL [Concomitant]
  5. ACYCLOVIR [Concomitant]
  6. ATIVAN [Concomitant]
  7. BACTRIM [Concomitant]
  8. VORICONAZOLE [Concomitant]

REACTIONS (1)
  - PULMONARY EMBOLISM [None]
